FAERS Safety Report 8328960-7 (Version None)
Quarter: 2012Q2

REPORT INFORMATION
  Report Type: 
  Country: None (occurrence: None)
  Receive Date: 20120502
  Receipt Date: 20120423
  Transmission Date: 20120825
  Serious: Yes (Other)
  Sender: FDA-Public Use
  Company Number: NL-TEVA-335454ISR

PATIENT
  Age: 72 Year
  Sex: Female

DRUGS (7)
  1. INSULIN ASPART [Concomitant]
     Route: 065
  2. PANTOPRAZOLE [Suspect]
     Route: 065
  3. METFORMIN HCL [Concomitant]
     Route: 065
  4. METOPROLOL TARTRATE [Concomitant]
     Route: 065
  5. ATORVASTATIN CALCIUM [Concomitant]
     Route: 065
  6. TRIAMTERENE AND HYDROCHLOROTHIAZIDE [Concomitant]
     Route: 065
  7. IODINE [Concomitant]
     Route: 065

REACTIONS (2)
  - HYPOGLYCAEMIA [None]
  - TUBULOINTERSTITIAL NEPHRITIS [None]
